FAERS Safety Report 16813954 (Version 2)
Quarter: 2020Q1

REPORT INFORMATION
  Report Type: Report from Study
  Country: US (occurrence: US)
  Receive Date: 20190917
  Receipt Date: 20200118
  Transmission Date: 20200409
  Serious: Yes (Hospitalization, Other)
  Sender: FDA-Public Use
  Company Number: US-AMGEN-USASP2019149682

PATIENT
  Age: 56 Year
  Sex: Female

DRUGS (4)
  1. REPATHA [Suspect]
     Active Substance: EVOLOCUMAB
     Indication: HYPERPROLINAEMIA
     Dosage: 140 MILLIGRAM, Q2WK
     Route: 065
  2. PRED [METHYLPREDNISOLONE] [Concomitant]
     Indication: CORNEAL TRANSPLANT
  3. REPATHA [Suspect]
     Active Substance: EVOLOCUMAB
     Indication: LIPIDS ABNORMAL
     Dosage: 420 MILLIGRAM, QMO
     Route: 065
  4. REPATHA [Suspect]
     Active Substance: EVOLOCUMAB
     Indication: HYPERLIPIDAEMIA
     Dosage: 140 MILLIGRAM, EVERY 10 DAYS
     Route: 065
     Dates: start: 201611

REACTIONS (4)
  - Protein S decreased [Unknown]
  - Off label use [Unknown]
  - Hypertension [Unknown]
  - Thrombosis [Unknown]

NARRATIVE: CASE EVENT DATE: 201611
